FAERS Safety Report 22771273 (Version 4)
Quarter: 2025Q1

REPORT INFORMATION
  Report Type: Spontaneous
  Country: US (occurrence: US)
  Receive Date: 20230801
  Receipt Date: 20250318
  Transmission Date: 20250409
  Serious: Yes (Other)
  Sender: SANOFI AVENTIS
  Company Number: US-SANOFI-01709414

PATIENT
  Age: 77 Year
  Sex: Male

DRUGS (3)
  1. LANTUS [Suspect]
     Active Substance: INSULIN GLARGINE
     Indication: Type 2 diabetes mellitus
     Dosage: 30 IU, QD
     Route: 065
  2. LANTUS [Suspect]
     Active Substance: INSULIN GLARGINE
     Indication: Diabetes mellitus
     Dosage: SOMETIMES TAKES 40 UNITS OF LANTUS AND SOMETIMES 20 UNITS, QD
     Route: 065
  3. NOVOLIN R [Concomitant]
     Active Substance: INSULIN HUMAN

REACTIONS (12)
  - Renal impairment [Unknown]
  - Diabetes mellitus inadequate control [Unknown]
  - Muscle spasms [Unknown]
  - Stress [Not Recovered/Not Resolved]
  - Gastrointestinal disorder [Unknown]
  - Blood glucose increased [Not Recovered/Not Resolved]
  - Tremor [Unknown]
  - Blood glucose decreased [Unknown]
  - Glycosylated haemoglobin increased [Unknown]
  - Oedema [Unknown]
  - Drug ineffective [Unknown]
  - Intentional product misuse [Unknown]

NARRATIVE: CASE EVENT DATE: 20230727
